FAERS Safety Report 8315756-5 (Version None)
Quarter: 2012Q2

REPORT INFORMATION
  Report Type: 
  Country: None (occurrence: None)
  Receive Date: 20120426
  Receipt Date: 20120413
  Transmission Date: 20120825
  Serious: Yes (Hospitalization)
  Sender: FDA-Public Use
  Company Number: US-JNJFOC-20120407749

PATIENT
  Sex: Female
  Weight: 58.06 kg

DRUGS (19)
  1. TYLENOL PM [Suspect]
     Indication: PRODUCT USED FOR UNKNOWN INDICATION
     Route: 065
  2. KLONOPIN [Concomitant]
     Indication: ANXIETY
     Route: 065
  3. RANITIDINE HCL [Concomitant]
     Indication: GASTRIC DISORDER
     Route: 065
  4. ZOLOFT [Concomitant]
     Indication: DEPRESSION
     Dosage: DAILY
     Route: 065
     Dates: start: 19960101
  5. ALBUTEROL [Concomitant]
     Indication: LUNG DISORDER
     Route: 065
  6. VICODIN [Concomitant]
     Indication: ARTHRITIS
     Route: 065
  7. VICODIN [Concomitant]
     Indication: BACK PAIN
     Route: 065
  8. ANTI-SMOKING DRUG [Concomitant]
     Route: 065
  9. PROAIR HFA [Concomitant]
     Indication: LUNG DISORDER
     Route: 065
  10. ALBUTEROL [Concomitant]
     Indication: CHRONIC OBSTRUCTIVE PULMONARY DISEASE
     Route: 065
  11. FLOVENT [Concomitant]
     Indication: LUNG DISORDER
     Route: 065
  12. ANTI-SMOKING DRUG [Concomitant]
     Indication: EX-TOBACCO USER
     Route: 065
  13. SPIRIVA [Concomitant]
     Indication: LUNG DISORDER
  14. TRIAMTERENE [Concomitant]
     Indication: ANXIETY
     Route: 065
     Dates: start: 19980101
  15. VALIUM [Concomitant]
     Route: 048
  16. ALL OTHER THERAPEUTIC PRODUCTS [Concomitant]
     Indication: NEUROPATHY PERIPHERAL
     Route: 065
  17. FLOVENT [Concomitant]
     Indication: CHRONIC OBSTRUCTIVE PULMONARY DISEASE
     Route: 065
  18. SPIRIVA [Concomitant]
     Indication: CHRONIC OBSTRUCTIVE PULMONARY DISEASE
  19. PROAIR HFA [Concomitant]
     Indication: CHRONIC OBSTRUCTIVE PULMONARY DISEASE
     Route: 065

REACTIONS (2)
  - SUICIDE ATTEMPT [None]
  - INTENTIONAL OVERDOSE [None]
